FAERS Safety Report 5625281-8 (Version None)
Quarter: 2008Q1

REPORT INFORMATION
  Report Type: 
  Country: None (occurrence: None)
  Receive Date: 20080208
  Receipt Date: 20080129
  Transmission Date: 20080703
  Serious: Yes (Disabling)
  Sender: FDA-Public Use
  Company Number: GXKR2008GB01212

PATIENT
  Age: 62 Year
  Sex: Male

DRUGS (10)
  1. ATENOLOL [Suspect]
     Dosage: 75 MG
  2. LANTUS [Suspect]
     Dosage: SUBCUTANEOUS
     Route: 058
     Dates: start: 20070901, end: 20071001
  3. AMLODIPINE [Concomitant]
  4. ACETYLSALICYLIC ACID SRT [Concomitant]
  5. ATORVASTATIN CALCIUM [Concomitant]
  6. CLOPIDOGREL [Concomitant]
  7. HUMALOG [Concomitant]
  8. IVABRADINE (IVABRADINE) [Concomitant]
  9. NICORANDIL (NICORANDIL) [Concomitant]
  10. TRANDOLAPRIL [Concomitant]

REACTIONS (10)
  - ANXIETY [None]
  - DIABETES MELLITUS INADEQUATE CONTROL [None]
  - ECZEMA [None]
  - EMOTIONAL DISTRESS [None]
  - ERYTHEMA [None]
  - IMPAIRED HEALING [None]
  - ITCHING SCAR [None]
  - PRURITUS [None]
  - URTICARIA [None]
  - WOUND DECOMPOSITION [None]
